FAERS Safety Report 22110703 (Version 2)
Quarter: 2023Q1

REPORT INFORMATION
  Report Type: Spontaneous
  Country: US (occurrence: US)
  Receive Date: 20230317
  Receipt Date: 20230329
  Transmission Date: 20230417
  Serious: No
  Sender: FDA-Public Use
  Company Number: US-009507513-2303USA003661

PATIENT
  Sex: Male

DRUGS (10)
  1. TEMODAR [Suspect]
     Active Substance: TEMOZOLOMIDE
     Indication: Rhabdoid tumour of the kidney
     Dosage: 60 MG/M2/DAY ON DAYS 1?21
     Route: 048
  2. TEMODAR [Suspect]
     Active Substance: TEMOZOLOMIDE
     Indication: Renal cancer metastatic
  3. BEVACIZUMAB [Suspect]
     Active Substance: BEVACIZUMAB
     Indication: Rhabdoid tumour of the kidney
     Dosage: 5 MG/KG EVERY 3 WEEKS
  4. BEVACIZUMAB [Suspect]
     Active Substance: BEVACIZUMAB
     Indication: Renal cancer metastatic
  5. CYCLOPHOSPHAMIDE [Suspect]
     Active Substance: CYCLOPHOSPHAMIDE
     Indication: Rhabdoid tumour of the kidney
     Dosage: 25 MG/M2/DAY ON DAYS 22?42
  6. CYCLOPHOSPHAMIDE [Suspect]
     Active Substance: CYCLOPHOSPHAMIDE
     Indication: Renal cancer metastatic
  7. VALPROIC ACID [Suspect]
     Active Substance: VALPROIC ACID
     Indication: Rhabdoid tumour of the kidney
     Dosage: 15 MG/KG/DAY DIVIDED INTO TWO DOSES
  8. VALPROIC ACID [Suspect]
     Active Substance: VALPROIC ACID
     Indication: Renal cancer metastatic
  9. CELECOXIB [Suspect]
     Active Substance: CELECOXIB
     Indication: Rhabdoid tumour of the kidney
     Dosage: 250 MG/M2 PO TWICE A DAY
  10. CELECOXIB [Suspect]
     Active Substance: CELECOXIB
     Indication: Renal cancer metastatic

REACTIONS (1)
  - Product use in unapproved indication [Unknown]
